FAERS Safety Report 9719637 (Version 1)
Quarter: 2013Q4

REPORT INFORMATION
  Report Type: Spontaneous
  Country: US (occurrence: US)
  Receive Date: 20131128
  Receipt Date: 20131128
  Transmission Date: 20140711
  Serious: No
  Sender: FDA-Public Use
  Company Number: US-B.I. PHARMACEUTICALS,INC./RIDGEFIELD-2013-BI-37976BP

PATIENT
  Age: 54 Year
  Sex: Male
  Weight: 159 kg

DRUGS (6)
  1. PRADAXA [Suspect]
     Indication: ATRIAL FIBRILLATION
     Route: 048
     Dates: start: 2010, end: 2010
  2. ALLOPURINOL [Concomitant]
     Dosage: 300 MG
     Route: 048
  3. SINGULAIR [Concomitant]
     Dosage: 10 MG
     Route: 048
  4. COMBIVENT AEROSOL [Concomitant]
     Route: 055
  5. FUROSEMIDE [Concomitant]
     Indication: FLUID RETENTION
     Dosage: 10 MG
     Route: 048
  6. KDUR [Concomitant]
     Route: 048

REACTIONS (2)
  - Nightmare [Recovered/Resolved]
  - Palpitations [Recovered/Resolved]
